FAERS Safety Report 7588009-0 (Version None)
Quarter: 2011Q3

REPORT INFORMATION
  Report Type: 
  Country: None (occurrence: None)
  Receive Date: 20110705
  Receipt Date: 20110628
  Transmission Date: 20111222
  Serious: No
  Sender: FDA-Public Use
  Company Number: US-PFIZER INC-2011145436

PATIENT

DRUGS (3)
  1. SYNTHROID [Concomitant]
     Dosage: 112 UG, UNK
  2. PRISTIQ [Suspect]
     Dosage: UNK
  3. MULTI-VITAMINS [Concomitant]
     Dosage: UNK

REACTIONS (2)
  - URTICARIA [None]
  - RASH [None]
